FAERS Safety Report 6150754-1 (Version None)
Quarter: 2009Q2

REPORT INFORMATION
  Report Type: 
  Country: None (occurrence: None)
  Receive Date: 20090409
  Receipt Date: 20090402
  Transmission Date: 20091009
  Serious: Yes (Death, Other)
  Sender: FDA-Public Use
  Company Number: US-BAXTER-2009BH003707

PATIENT
  Age: 74 Year
  Sex: Male
  Weight: 89 kg

DRUGS (15)
  1. HEPARIN SODIUM INJECTION [Suspect]
     Indication: CATHETERISATION CARDIAC
     Route: 042
     Dates: start: 20070306, end: 20070306
  2. HEPARIN SODIUM INJECTION [Suspect]
     Indication: CORONARY ARTERY BYPASS
     Route: 042
     Dates: start: 20070306, end: 20070306
  3. HEPARIN SODIUM INJECTION [Suspect]
     Route: 042
     Dates: start: 20070307, end: 20070307
  4. HEPARIN SODIUM INJECTION [Suspect]
     Route: 042
     Dates: start: 20070307, end: 20070307
  5. HEPARIN SODIUM INJECTION [Suspect]
     Route: 042
     Dates: start: 20070307, end: 20070307
  6. HEPARIN SODIUM INJECTION [Suspect]
     Route: 042
     Dates: start: 20070307, end: 20070307
  7. HEPARIN SODIUM INJECTION [Suspect]
     Route: 042
     Dates: start: 20070307, end: 20070307
  8. HEPARIN SODIUM INJECTION [Suspect]
     Route: 042
     Dates: start: 20070307, end: 20070307
  9. INDERAL [Concomitant]
     Indication: DRUG USE FOR UNKNOWN INDICATION
     Route: 048
  10. ALTACE [Concomitant]
     Indication: DRUG USE FOR UNKNOWN INDICATION
     Route: 048
  11. ASPIRIN [Concomitant]
     Indication: DRUG USE FOR UNKNOWN INDICATION
     Route: 048
  12. NITROGLYCERIN [Concomitant]
     Indication: DRUG USE FOR UNKNOWN INDICATION
     Route: 065
  13. FLOMAX [Concomitant]
     Indication: DRUG USE FOR UNKNOWN INDICATION
     Route: 048
  14. LIPITOR [Concomitant]
     Indication: DRUG USE FOR UNKNOWN INDICATION
     Route: 065
  15. ASPIRIN [Concomitant]
     Route: 048

REACTIONS (11)
  - ANOREXIA [None]
  - BALANCE DISORDER [None]
  - CARDIAC PROCEDURE COMPLICATION [None]
  - CARDIO-RESPIRATORY ARREST [None]
  - DYSPNOEA [None]
  - HYPOTENSION [None]
  - NAUSEA [None]
  - NODAL RHYTHM [None]
  - UNRESPONSIVE TO STIMULI [None]
  - VENTRICULAR DYSFUNCTION [None]
  - VENTRICULAR FIBRILLATION [None]
